FAERS Safety Report 8762024 (Version 1)
Quarter: 2012Q4

REPORT INFORMATION
  Report Type: 
  Country: CO (occurrence: CO)
  Receive Date: 20120830
  Receipt Date: 20120830
  Transmission Date: 20130627
  Serious: Yes (Other)
  Sender: FDA-Public Use
  Company Number: CO-PFIZER INC-2012210121

PATIENT
  Age: 14 Year
  Sex: Male

DRUGS (2)
  1. GENOTROPIN [Suspect]
     Indication: GROWTH HORMONE DEFICIENCY
     Dosage: 1.4 mg, 1x/day
     Route: 058
     Dates: start: 201103, end: 201203
  2. ALLEGRA [Concomitant]
     Indication: RHINITIS
     Dosage: UNK
     Route: 048

REACTIONS (1)
  - Thyroid disorder [Recovered/Resolved]
